FAERS Safety Report 5367976-X (Version None)
Quarter: 2007Q2

REPORT INFORMATION
  Report Type: 
  Country: None (occurrence: None)
  Receive Date: 20070622
  Receipt Date: 20070611
  Transmission Date: 20071010
  Serious: Yes (Death)
  Sender: FDA-Public Use
  Company Number: US-PFIZER INC-2007047566

PATIENT

DRUGS (1)
  1. SUTENT [Suspect]

REACTIONS (1)
  - PULMONARY FIBROSIS [None]
